FAERS Safety Report 5359840-7 (Version None)
Quarter: 2007Q2

REPORT INFORMATION
  Report Type: 
  Country: None (occurrence: None)
  Receive Date: 20070530
  Receipt Date: 20070315
  Transmission Date: 20071010
  Serious: No
  Sender: FDA-Public Use
  Company Number: 2007PV031752

PATIENT
  Age: 76 Year
  Sex: Female
  Weight: 75.2971 kg

DRUGS (2)
  1. BYETTA [Suspect]
     Indication: DIABETES MELLITUS NON-INSULIN-DEPENDENT
     Dosage: 10; 5 MCG;BID;SC
     Dates: start: 20050101, end: 20050101
  2. BYETTA [Suspect]
     Indication: DIABETES MELLITUS NON-INSULIN-DEPENDENT
     Dosage: 10; 5 MCG;BID;SC
     Dates: start: 20050101

REACTIONS (1)
  - WEIGHT INCREASED [None]
